FAERS Safety Report 19579152 (Version 5)
Quarter: 2022Q1

REPORT INFORMATION
  Report Type: Spontaneous
  Country: US (occurrence: US)
  Receive Date: 20210719
  Receipt Date: 20220118
  Transmission Date: 20220423
  Serious: Yes (Other)
  Sender: FDA-Public Use
  Company Number: US-CELGENE-USA-20210702846

PATIENT
  Age: 74 Year
  Sex: Female
  Weight: 78.224 kg

DRUGS (2)
  1. REVLIMID [Suspect]
     Active Substance: LENALIDOMIDE
     Indication: Plasma cell myeloma
     Dosage: 25 MILLIGRAM
     Route: 048
     Dates: start: 201510
  2. REVLIMID [Suspect]
     Active Substance: LENALIDOMIDE
     Dosage: 25 MILLIGRAM
     Route: 048
     Dates: start: 202102

REACTIONS (5)
  - Nephrolithiasis [Unknown]
  - Malignant melanoma [Unknown]
  - Cardiac disorder [Unknown]
  - COVID-19 [Unknown]
  - Back pain [Unknown]

NARRATIVE: CASE EVENT DATE: 20210801
